FAERS Safety Report 21187444 (Version 1)
Quarter: 2022Q3

REPORT INFORMATION
  Report Type: Spontaneous
  Country: CN (occurrence: CN)
  Receive Date: 20220808
  Receipt Date: 20220808
  Transmission Date: 20221026
  Serious: Yes (Other)
  Sender: FDA-Public Use
  Company Number: CN-009507513-2208CHN002909

PATIENT
  Age: 54 Year
  Sex: Male
  Weight: 47 kg

DRUGS (3)
  1. KEYTRUDA [Suspect]
     Active Substance: PEMBROLIZUMAB
     Indication: Pancreatic carcinoma
     Dosage: 200 MG, ONCE, IV DRIP
     Route: 041
     Dates: start: 20220608, end: 20220608
  2. NEDAPLATIN [Suspect]
     Active Substance: NEDAPLATIN
     Indication: Pancreatic carcinoma
     Dosage: 55 MG, QD, IV DRIP
     Route: 041
     Dates: start: 20220610, end: 20220611
  3. PACLITAXEL [Suspect]
     Active Substance: PACLITAXEL
     Indication: Pancreatic carcinoma
     Dosage: 300 MG, QD, IV DRIP
     Route: 041
     Dates: start: 20220610, end: 20220611

REACTIONS (2)
  - Myelosuppression [Recovering/Resolving]
  - Product use in unapproved indication [Unknown]

NARRATIVE: CASE EVENT DATE: 20220608
